FAERS Safety Report 6960925-X (Version None)
Quarter: 2010Q3

REPORT INFORMATION
  Report Type: 
  Country: None (occurrence: None)
  Receive Date: 20100830
  Receipt Date: 20100816
  Transmission Date: 20110219
  Serious: Yes (Other)
  Sender: FDA-Public Use
  Company Number: OSCN-PR-1008S-0222

PATIENT
  Sex: Male

DRUGS (5)
  1. OMNISCAN [Suspect]
     Indication: PRODUCT USED FOR UNKNOWN INDICATION
     Dosage: SINGLE DOSE
     Dates: start: 20040713, end: 20040713
  2. OMNISCAN [Suspect]
     Indication: PRODUCT USED FOR UNKNOWN INDICATION
     Dosage: SINGLE DOSE
     Dates: start: 20041015, end: 20041015
  3. PROHANCE [Suspect]
     Dates: start: 20030703, end: 20030703
  4. PROHANCE [Suspect]
     Dates: start: 20050414, end: 20050414
  5. GANDOLINIUM (UNSPECIFIED) [Suspect]
     Dates: start: 20050414, end: 20050414

REACTIONS (1)
  - NEPHROGENIC SYSTEMIC FIBROSIS [None]
